FAERS Safety Report 4885406-9 (Version None)
Quarter: 2005Q4

REPORT INFORMATION
  Report Type: 
  Country: None (occurrence: None)
  Receive Date: 20051222
  Receipt Date: 20050830
  Transmission Date: 20060501
  Serious: Yes (Other)
  Sender: FDA-Public Use
  Company Number: PHEH2005US09728

PATIENT
  Age: 12 Year
  Sex: Male
  Weight: 43.5 kg

DRUGS (4)
  1. FOCALIN XR [Suspect]
     Indication: ATTENTION DEFICIT/HYPERACTIVITY DISORDER
     Dosage: 30 MG, QD, ORAL
     Route: 048
     Dates: start: 20050823, end: 20050829
  2. FOCALIN XR [Suspect]
     Indication: AUTISM
     Dosage: 30 MG, QD, ORAL
     Route: 048
     Dates: start: 20050823, end: 20050829
  3. CLONIDINE [Concomitant]
  4. XANAX [Concomitant]

REACTIONS (2)
  - FEELING ABNORMAL [None]
  - HYPERTENSION [None]
